FAERS Safety Report 10534238 (Version 1)
Quarter: 2014Q4

REPORT INFORMATION
  Report Type: Spontaneous
  Country: ES (occurrence: ES)
  Receive Date: 20141022
  Receipt Date: 20141022
  Transmission Date: 20150529
  Serious: Yes (Disabling)
  Sender: FDA-Public Use
  Company Number: ES-ASTELLAS-2014US015222

PATIENT
  Age: 65 Year
  Sex: Male

DRUGS (1)
  1. ADVAGRAF [Suspect]
     Active Substance: TACROLIMUS
     Indication: LIVER TRANSPLANT
     Route: 048
     Dates: start: 20140920

REACTIONS (1)
  - Pseudobulbar palsy [Recovered/Resolved]

NARRATIVE: CASE EVENT DATE: 20140926
